APPROVED DRUG PRODUCT: LINEZOLID
Active Ingredient: LINEZOLID
Strength: 600MG
Dosage Form/Route: TABLET;ORAL
Application: A210702 | Product #001 | TE Code: AB
Applicant: CHARTWELL RX SCIENCES LLC
Approved: Apr 25, 2019 | RLD: No | RS: No | Type: RX